APPROVED DRUG PRODUCT: METHYLPHENIDATE HYDROCHLORIDE
Active Ingredient: METHYLPHENIDATE HYDROCHLORIDE
Strength: 5MG
Dosage Form/Route: TABLET;ORAL
Application: A206840 | Product #001
Applicant: ALVOGEN INC
Approved: Sep 15, 2016 | RLD: No | RS: No | Type: DISCN